FAERS Safety Report 10460998 (Version 1)
Quarter: 2014Q3

REPORT INFORMATION
  Report Type: Spontaneous
  Country: US (occurrence: None)
  Receive Date: 20140908
  Receipt Date: 20140908
  Transmission Date: 20150326
  Serious: Yes (Other)
  Sender: FDA-Public Use
  Company Number: US-145583

PATIENT
  Age: 56 Year
  Sex: Male

DRUGS (1)
  1. WINRHO [Suspect]
     Active Substance: HUMAN RHO(D) IMMUNE GLOBULIN
     Indication: IMMUNE THROMBOCYTOPENIC PURPURA
     Route: 048
     Dates: start: 2000

REACTIONS (2)
  - Hepatitis C [None]
  - Overdose [None]

NARRATIVE: CASE EVENT DATE: 2000
